FAERS Safety Report 8090042-X (Version None)
Quarter: 2012Q1

REPORT INFORMATION
  Report Type: 
  Country: None (occurrence: None)
  Receive Date: 20120129
  Receipt Date: 20111027
  Transmission Date: 20120608
  Serious: No
  Sender: FDA-Public Use
  Company Number: US-ABBOTT-11P-163-0869772-00

PATIENT
  Sex: Female
  Weight: 60.836 kg

DRUGS (1)
  1. HUMIRA [Suspect]
     Indication: CROHN'S DISEASE
     Dates: start: 20110201, end: 20110401

REACTIONS (4)
  - MUSCULOSKELETAL PAIN [None]
  - PARAESTHESIA [None]
  - PERONEAL NERVE PALSY [None]
  - DYSGEUSIA [None]
